FAERS Safety Report 10652920 (Version 2)
Quarter: 2014Q4

REPORT INFORMATION
  Report Type: Spontaneous
  Country: US (occurrence: US)
  Receive Date: 20141215
  Receipt Date: 20141215
  Transmission Date: 20150529
  Serious: No
  Sender: FDA-Public Use
  Company Number: US-GLAXOSMITHKLINE-A1084265A

PATIENT

DRUGS (1)
  1. VOTRIENT [Suspect]
     Active Substance: PAZOPANIB HYDROCHLORIDE
     Indication: RENAL CANCER
     Dosage: 200 MG, U
     Route: 065
     Dates: start: 2011

REACTIONS (4)
  - Malaise [Unknown]
  - Medication error [Unknown]
  - Confusional state [Unknown]
  - Hearing aid user [Unknown]
